FAERS Safety Report 9602645 (Version 2)
Quarter: 2013Q4

REPORT INFORMATION
  Report Type: Spontaneous
  Country: SE (occurrence: None)
  Receive Date: 20131003
  Receipt Date: 20131018
  Transmission Date: 20140711
  Serious: Yes (Other)
  Sender: FDA-Public Use
  Company Number: 7239423

PATIENT
  Age: 58 Year
  Sex: Female

DRUGS (2)
  1. EUTHYROX [Suspect]
     Indication: HYPOTHYROIDISM
     Dosage: 1 DF (100 MCG,PER DAY)
     Route: 048
     Dates: start: 20130412, end: 20130426
  2. BEHEPAN (CYANOCOBALAMIN) (CYANOCOBALAMIN) [Concomitant]

REACTIONS (12)
  - Heart rate irregular [None]
  - Chest discomfort [None]
  - Dyspnoea [None]
  - Fluid retention [None]
  - Dizziness [None]
  - Muscle contracture [None]
  - Myalgia [None]
  - Arthralgia [None]
  - Headache [None]
  - Oedema [None]
  - Eye pain [None]
  - Palpitations [None]
